FAERS Safety Report 5476998-X (Version None)
Quarter: 2007Q3

REPORT INFORMATION
  Report Type: 
  Country: None (occurrence: None)
  Receive Date: 20070831
  Receipt Date: 20070607
  Transmission Date: 20080115
  Serious: No
  Sender: FDA-Public Use
  Company Number: PHEH2007US08496

PATIENT

DRUGS (1)
  1. EXJADE [Suspect]
     Dosage: ORAL
     Route: 048

REACTIONS (1)
  - HAEMATURIA [None]
